FAERS Safety Report 9099398 (Version 2)
Quarter: 2013Q3

REPORT INFORMATION
  Report Type: Spontaneous
  Country: AU (occurrence: AU)
  Receive Date: 20130214
  Receipt Date: 20130703
  Transmission Date: 20140515
  Serious: Yes (Other)
  Sender: FDA-Public Use
  Company Number: AU-BRISTOL-MYERS SQUIBB COMPANY-17361254

PATIENT
  Age: 44 Year
  Sex: Female

DRUGS (1)
  1. SPRYCEL (CML) TABS 100 MG [Suspect]
     Indication: CHRONIC MYELOID LEUKAEMIA
     Dosage: 2008-JAN13?MAY13-UNK
     Dates: start: 2008

REACTIONS (1)
  - Adenocarcinoma pancreas [Unknown]
